FAERS Safety Report 7683365-7 (Version None)
Quarter: 2011Q3

REPORT INFORMATION
  Report Type: 
  Country: None (occurrence: None)
  Receive Date: 20110815
  Receipt Date: 20110805
  Transmission Date: 20111222
  Serious: Yes (Hospitalization, Other)
  Sender: FDA-Public Use
  Company Number: US-BAYER-200924976NA

PATIENT
  Age: 53 Year
  Sex: Male
  Weight: 90.703 kg

DRUGS (14)
  1. GLUCOPHAGE [Concomitant]
     Indication: DIABETES MELLITUS
     Dosage: 500 MG, BID
     Route: 048
  2. GLYBURIDE [Concomitant]
     Indication: DIABETES MELLITUS
     Dosage: 3 MG, BID
     Route: 048
  3. MANNITOL [Concomitant]
     Dosage: PUMP
     Dates: start: 20021230, end: 20021230
  4. DOBUTREX [Concomitant]
     Dosage: UNK
     Route: 042
     Dates: start: 20021230, end: 20021230
  5. TRASYLOL [Suspect]
     Indication: STERNOTOMY
     Dosage: 1 ML, INITIAL (TEST) DOSE
     Route: 042
     Dates: start: 20021230
  6. ASPIRIN [Concomitant]
     Dosage: 81 MG, UNK
     Route: 048
  7. TRASYLOL [Suspect]
     Indication: CARDIOPULMONARY BYPASS
     Dosage: 200 ML THEN 50 ML/HR
     Route: 042
     Dates: start: 20021230, end: 20021230
  8. HEPARIN [Concomitant]
     Dosage: 60.000 U, PUMP
     Dates: start: 20021230, end: 20021230
  9. VERSED [Concomitant]
     Dosage: 2 MG, UNK
     Route: 042
     Dates: start: 20021230, end: 20021230
  10. TRASYLOL [Suspect]
     Indication: AORTIC VALVE REPLACEMENT
  11. LISINOPRIL [Concomitant]
     Dosage: 20 MG, UNK
     Route: 048
  12. TRICOR [Concomitant]
     Dosage: 160 MG, UNK
     Route: 048
  13. INSULIN [Concomitant]
     Dosage: UNK
     Route: 042
     Dates: start: 20021230
  14. PROTAMINE [Concomitant]
     Dosage: UNK
     Route: 042
     Dates: start: 20021230, end: 20021230

REACTIONS (12)
  - FEAR [None]
  - RENAL FAILURE [None]
  - RENAL IMPAIRMENT [None]
  - CEREBROVASCULAR ACCIDENT [None]
  - ANXIETY [None]
  - ANHEDONIA [None]
  - STRESS [None]
  - MULTI-ORGAN FAILURE [None]
  - RENAL INJURY [None]
  - EMOTIONAL DISTRESS [None]
  - INJURY [None]
  - PAIN [None]
